FAERS Safety Report 11461886 (Version 1)
Quarter: 2015Q3

REPORT INFORMATION
  Report Type: Spontaneous
  Country: US (occurrence: US)
  Receive Date: 20150831
  Receipt Date: 20150831
  Transmission Date: 20151125
  Serious: No
  Sender: FDA-Public Use
  Company Number: US-ELI_LILLY_AND_COMPANY-US201009002514

PATIENT
  Age: 60 Year
  Sex: Male

DRUGS (1)
  1. CYMBALTA [Suspect]
     Active Substance: DULOXETINE HYDROCHLORIDE
     Indication: PAIN

REACTIONS (4)
  - Lacrimation increased [Not Recovered/Not Resolved]
  - Off label use [Recovered/Resolved]
  - Yawning [Not Recovered/Not Resolved]
  - Pain in jaw [Not Recovered/Not Resolved]
